FAERS Safety Report 15153957 (Version 1)
Quarter: 2018Q3

REPORT INFORMATION
  Report Type: Spontaneous
  Country: JP (occurrence: JP)
  Receive Date: 20180717
  Receipt Date: 20180717
  Transmission Date: 20181010
  Serious: Yes (Disabling)
  Sender: FDA-Public Use
  Company Number: JP-JNJFOC-20180718439

PATIENT
  Age: 89 Year
  Sex: Male
  Weight: 58 kg

DRUGS (5)
  1. LIVALO [Concomitant]
     Active Substance: PITAVASTATIN CALCIUM
     Dosage: START DATE: BEFORE ADMINISTRATION OF CANAGLIFLOZIN
     Route: 048
  2. FEBURIC [Concomitant]
     Active Substance: FEBUXOSTAT
     Dosage: START DATE: BEFORE ADMINISTRATION OF CANAGLIFLOZIN
     Route: 048
  3. CARDENALIN [Concomitant]
     Active Substance: DOXAZOSIN MESYLATE
     Dosage: START DATE: BEFORE ADMINISTRATION OF CANAGLIFLOZIN
     Route: 048
  4. NORVASC [Concomitant]
     Active Substance: AMLODIPINE BESYLATE
     Dosage: START DATE: BEFORE ADMINISTRATION OF CANAGLFLOZIN
     Route: 048
  5. CANAGLU [Suspect]
     Active Substance: CANAGLIFLOZIN
     Indication: TYPE 2 DIABETES MELLITUS
     Route: 048
     Dates: start: 20160714

REACTIONS (1)
  - Myocardial infarction [Recovering/Resolving]

NARRATIVE: CASE EVENT DATE: 20171218
